FAERS Safety Report 4415985-7 (Version None)
Quarter: 2004Q3

REPORT INFORMATION
  Report Type: 
  Country: None (occurrence: None)
  Receive Date: 20040802
  Receipt Date: 20040726
  Transmission Date: 20050211
  Serious: Yes (Hospitalization, Other)
  Sender: FDA-Public Use
  Company Number: DE-JNJFOC-20040707431

PATIENT
  Age: 78 Year
  Sex: Male

DRUGS (25)
  1. LEVOFLOXACIN [Suspect]
     Indication: PNEUMONIA
     Dosage: INTRAVENOUS
     Route: 042
     Dates: start: 20030212, end: 20030218
  2. LEVOFLOXACIN [Suspect]
     Indication: PNEUMONIA
     Dosage: ORAL
     Route: 048
     Dates: start: 20030219, end: 20030220
  3. PROTONIX [Concomitant]
  4. COLACE (DOCUSATE SODIUM) [Concomitant]
  5. ARICEPT [Concomitant]
  6. PEPCID [Concomitant]
  7. NITROBID (GLYCERYL TRINITRATE) [Concomitant]
  8. ZOLOFT [Concomitant]
  9. SOLU-MEDROL [Concomitant]
  10. RESTORIL [Concomitant]
  11. MORPHINE [Concomitant]
  12. ZOFRAN [Concomitant]
  13. PHYTONADIONE [Concomitant]
  14. ATIVAN [Concomitant]
  15. LASIX [Concomitant]
  16. DIOVAN [Concomitant]
  17. POTASSIUM CHLORIDE [Concomitant]
  18. ALBUTEROL [Concomitant]
  19. FLOMAX [Concomitant]
  20. OXYGEN (OXYGEN) [Concomitant]
  21. DIFLUCAN [Concomitant]
  22. LIDOCAINE [Concomitant]
  23. MIRAPEX [Concomitant]
  24. CELEXA [Concomitant]
  25. ROBITUSSIN AC (CHERACOL / USA/) [Concomitant]

REACTIONS (11)
  - ABDOMINAL HERNIA [None]
  - ABDOMINAL STRANGULATED HERNIA [None]
  - AORTIC CALCIFICATION [None]
  - COLONIC STENOSIS [None]
  - FAECALOMA [None]
  - HIATUS HERNIA [None]
  - INTERVERTEBRAL DISC DEGENERATION [None]
  - INTESTINAL DILATATION [None]
  - NEPHROLITHIASIS [None]
  - PNEUMONIA [None]
  - SPINAL OSTEOARTHRITIS [None]
